FAERS Safety Report 6056147-X (Version None)
Quarter: 2009Q1

REPORT INFORMATION
  Report Type: 
  Country: None (occurrence: None)
  Receive Date: 20090129
  Receipt Date: 20090116
  Transmission Date: 20090719
  Serious: Yes (Death)
  Sender: FDA-Public Use
  Company Number: US-RANBAXY-2009RR-21209

PATIENT
  Age: 41 Year
  Sex: Male

DRUGS (6)
  1. SUCCINYLCHOLINE CHLORIDE [Suspect]
     Indication: COMPLETED SUICIDE
  2. CISATRACURIUM [Suspect]
     Indication: COMPLETED SUICIDE
  3. MIDAZOLAM HYDROCHLORIDE [Suspect]
     Indication: COMPLETED SUICIDE
  4. PROPOFOL [Suspect]
     Indication: COMPLETED SUICIDE
  5. VENLAFAXINE [Suspect]
     Indication: COMPLETED SUICIDE
  6. NEOSTIGMINE [Suspect]
     Indication: COMPLETED SUICIDE

REACTIONS (1)
  - COMPLETED SUICIDE [None]
